FAERS Safety Report 17058735 (Version 1)
Quarter: 2019Q4

REPORT INFORMATION
  Report Type: Spontaneous
  Country: US (occurrence: US)
  Receive Date: 20191121
  Receipt Date: 20191121
  Transmission Date: 20200122
  Serious: Yes (Life-Threatening, Hospitalization, Other)
  Sender: FDA-Public Use
  Company Number: US-RECKITT BENCKISER HEALTHCARE INT LIMITED-RB-92225-2019

PATIENT
  Sex: Male

DRUGS (16)
  1. LIDOCAINE. [Suspect]
     Active Substance: LIDOCAINE
     Indication: VENTRICULAR TACHYCARDIA
  2. LIDOCAINE. [Suspect]
     Active Substance: LIDOCAINE
     Indication: RIGHT VENTRICULAR DYSFUNCTION
  3. PROCAINAMIDE [Suspect]
     Active Substance: PROCAINAMIDE HYDROCHLORIDE
     Indication: SINUS TACHYCARDIA
  4. LIDOCAINE. [Suspect]
     Active Substance: LIDOCAINE
     Indication: SINUS TACHYCARDIA
  5. AMIODARONE [Suspect]
     Active Substance: AMIODARONE
     Indication: PULMONARY VALVE STENOSIS
     Dosage: DOSE INCREMENTALLY ESCALATED TO A MAXIMUM OF 20 MCG/KG/MINUTE
     Route: 065
  6. PROCAINAMIDE [Suspect]
     Active Substance: PROCAINAMIDE HYDROCHLORIDE
     Indication: RIGHT VENTRICULAR DYSFUNCTION
  7. PROCAINAMIDE [Suspect]
     Active Substance: PROCAINAMIDE HYDROCHLORIDE
     Indication: VENTRICULAR TACHYCARDIA
  8. ESMOLOL [Suspect]
     Active Substance: ESMOLOL HYDROCHLORIDE
     Indication: PULMONARY VALVE STENOSIS
  9. ESMOLOL [Suspect]
     Active Substance: ESMOLOL HYDROCHLORIDE
     Indication: RIGHT VENTRICULAR DYSFUNCTION
  10. ESMOLOL [Suspect]
     Active Substance: ESMOLOL HYDROCHLORIDE
     Indication: SINUS TACHYCARDIA
  11. AMIODARONE [Suspect]
     Active Substance: AMIODARONE
     Indication: VENTRICULAR TACHYCARDIA
  12. LIDOCAINE. [Suspect]
     Active Substance: LIDOCAINE
     Indication: PULMONARY VALVE STENOSIS
     Dosage: UNK
     Route: 065
  13. PROCAINAMIDE [Suspect]
     Active Substance: PROCAINAMIDE HYDROCHLORIDE
     Indication: PULMONARY VALVE STENOSIS
     Dosage: UNK
     Route: 065
  14. ESMOLOL [Suspect]
     Active Substance: ESMOLOL HYDROCHLORIDE
     Indication: VENTRICULAR TACHYCARDIA
     Dosage: UNK
     Route: 065
  15. AMIODARONE [Suspect]
     Active Substance: AMIODARONE
     Indication: RIGHT VENTRICULAR DYSFUNCTION
     Dosage: 15 MICROGRAM/KILOGRAM, PER MINUTE
     Route: 065
  16. AMIODARONE [Suspect]
     Active Substance: AMIODARONE
     Indication: SINUS TACHYCARDIA

REACTIONS (1)
  - Drug ineffective [Recovered/Resolved]
